FAERS Safety Report 6518676-1 (Version None)
Quarter: 2009Q4

REPORT INFORMATION
  Report Type: 
  Country: None (occurrence: None)
  Receive Date: 20091228
  Receipt Date: 20091217
  Transmission Date: 20100525
  Serious: Yes (Hospitalization)
  Sender: FDA-Public Use
  Company Number: CN-ROCHE-675531

PATIENT
  Age: 46 Year
  Sex: Male
  Weight: 80.5 kg

DRUGS (6)
  1. CELLCEPT [Suspect]
     Indication: RENAL TRANSPLANT
     Route: 048
     Dates: start: 20040301
  2. PREDNISONE TAB [Suspect]
     Indication: RENAL TRANSPLANT
     Route: 048
     Dates: start: 20040301
  3. CYCLOSPORINE [Concomitant]
     Indication: RENAL TRANSPLANT
     Dosage: BRAND NAME WAS XINSAISIPING. STRENGTH: 50MG/10MG
     Route: 048
     Dates: start: 20040301
  4. CHINESE MEDICINE NOS [Concomitant]
     Indication: RENAL TRANSPLANT
     Dosage: BRAND NAME WAS BAILINGJIAONANG.
     Route: 048
     Dates: start: 20060801
  5. CHINESE MEDICINE NOS [Concomitant]
     Indication: PROPHYLAXIS
     Dosage: BRAND NAME WAS KUIHUAHUGANPIAN.
     Route: 048
     Dates: start: 20040301
  6. ESSENTIALE N [Concomitant]
     Indication: PROPHYLAXIS
     Route: 048
     Dates: start: 20080401

REACTIONS (3)
  - BLOOD BILIRUBIN INCREASED [None]
  - ERYTHEMA [None]
  - OCULAR HYPERAEMIA [None]
